FAERS Safety Report 6192392-0 (Version None)
Quarter: 2009Q2

REPORT INFORMATION
  Report Type: 
  Country: None (occurrence: None)
  Receive Date: 20090513
  Receipt Date: 20090513
  Transmission Date: 20091009
  Serious: No
  Sender: FDA-Public Use
  Company Number: None

PATIENT
  Sex: Male
  Weight: 64.8644 kg

DRUGS (1)
  1. PANGESTYME CN 20 E.C. (RECALL BY YOU) [Suspect]
     Indication: PANCREATIC DISORDER
     Dosage: 450 FOR 3MTS 5 A DAY
     Dates: start: 20060901, end: 20090301

REACTIONS (3)
  - ABDOMINAL DISCOMFORT [None]
  - RED BLOOD CELL COUNT DECREASED [None]
  - WEIGHT DECREASED [None]
